FAERS Safety Report 10229416 (Version 14)
Quarter: 2015Q2

REPORT INFORMATION
  Report Type: Report from Study
  Country: IT (occurrence: IT)
  Receive Date: 20140611
  Receipt Date: 20150603
  Transmission Date: 20150821
  Serious: Yes (Death, Hospitalization)
  Sender: FDA-Public Use
  Company Number: IT-ROCHE-1416194

PATIENT
  Age: 72 Year
  Sex: Male
  Weight: 78 kg

DRUGS (30)
  1. PANTOPRAZOLE [Concomitant]
     Active Substance: PANTOPRAZOLE SODIUM
     Route: 048
     Dates: start: 2012
  2. TRIMETON (ITALY) [Concomitant]
     Dosage: 2 VIALS
     Route: 042
     Dates: start: 20140430, end: 20140430
  3. RANITIDINE [Concomitant]
     Active Substance: RANITIDINE\RANITIDINE HYDROCHLORIDE
     Dosage: 1 VIAL
     Route: 042
     Dates: start: 20140424, end: 20140424
  4. ENALAPRIL [Concomitant]
     Active Substance: ENALAPRIL
     Route: 048
     Dates: start: 2012
  5. DUTASTERIDE. [Concomitant]
     Active Substance: DUTASTERIDE
     Route: 048
     Dates: start: 20130130
  6. SULFAMETOXAZOL [Concomitant]
     Indication: PROPHYLAXIS
     Route: 048
     Dates: start: 20140426
  7. TRIMETON (ITALY) [Concomitant]
     Dosage: 2 VIALS
     Route: 042
     Dates: start: 20140424, end: 20140424
  8. SOLDESAM [Concomitant]
     Active Substance: DEXAMETHASONE
     Indication: PROPHYLAXIS
     Route: 042
     Dates: start: 20140416, end: 20140417
  9. SOLDESAM [Concomitant]
     Active Substance: DEXAMETHASONE
     Route: 042
     Dates: start: 20140424, end: 20140424
  10. OBINUTUZUMAB [Suspect]
     Active Substance: OBINUTUZUMAB
     Dosage: C1D2, DOSE: 975 MG
     Route: 042
     Dates: start: 20140417
  11. SOLDESAM [Concomitant]
     Active Substance: DEXAMETHASONE
     Route: 042
     Dates: start: 20140430, end: 20140430
  12. RANITIDINE [Concomitant]
     Active Substance: RANITIDINE\RANITIDINE HYDROCHLORIDE
     Indication: PROPHYLAXIS
     Dosage: 1 VIAL
     Route: 042
     Dates: start: 20140416, end: 20140417
  13. TACHIPIRINA [Concomitant]
     Active Substance: ACETAMINOPHEN
     Indication: PROPHYLAXIS
     Route: 048
     Dates: start: 20140416, end: 20140417
  14. TACHIPIRINA [Concomitant]
     Active Substance: ACETAMINOPHEN
     Route: 048
     Dates: start: 20140424, end: 20140424
  15. TACHIPIRINA [Concomitant]
     Active Substance: ACETAMINOPHEN
     Route: 048
     Dates: start: 20140514, end: 20140514
  16. OBINUTUZUMAB [Suspect]
     Active Substance: OBINUTUZUMAB
     Indication: CHRONIC LYMPHOCYTIC LEUKAEMIA
     Dosage: 1000 MG ON 14-MAY-2014 WHICH WAS THE LAST DOSE PRIOR TO ONSET OF SERIOUS ADVERSE EVENT.?1000 MG IV O
     Route: 042
     Dates: start: 20140416
  17. NOVALGIN [Concomitant]
     Active Substance: METAMIZOLE SODIUM
     Route: 042
     Dates: start: 20140609, end: 20140610
  18. TRIMETON (ITALY) [Concomitant]
     Indication: PROPHYLAXIS
     Dosage: 2 VIALS
     Route: 042
     Dates: start: 20140416, end: 20140417
  19. TRIMETON (ITALY) [Concomitant]
     Dosage: 2 VIALS
     Route: 042
     Dates: start: 20140514, end: 20140514
  20. SOLDESAM [Concomitant]
     Active Substance: DEXAMETHASONE
     Route: 042
     Dates: start: 20140514, end: 20140514
  21. BENDAMUSTINE [Suspect]
     Active Substance: BENDAMUSTINE
     Indication: CHRONIC LYMPHOCYTIC LEUKAEMIA
     Dosage: C1D2, LAST DOSE PRIOR TO ONSET OF SERIOUS ADVERSE EVENT WAS RECEIVED ON 14/MAY/2014.
     Route: 042
     Dates: start: 20140417
  22. ALLOPURINOL. [Concomitant]
     Active Substance: ALLOPURINOL
     Route: 048
     Dates: start: 20140424
  23. TACHIPIRINA [Concomitant]
     Active Substance: ACETAMINOPHEN
     Route: 048
     Dates: start: 20140430, end: 20140430
  24. IDROCLOROTIAZIDE [Concomitant]
     Active Substance: HYDROCHLOROTHIAZIDE
     Route: 048
     Dates: start: 2012
  25. ALLOPURINOL. [Concomitant]
     Active Substance: ALLOPURINOL
     Indication: PROPHYLAXIS
     Route: 048
     Dates: start: 20140414, end: 20140423
  26. RANITIDINE [Concomitant]
     Active Substance: RANITIDINE\RANITIDINE HYDROCHLORIDE
     Dosage: 1 VIAL
     Route: 042
     Dates: start: 20140514, end: 20140514
  27. TRIMETOPRIM [Concomitant]
     Active Substance: TRIMETHOPRIM
     Route: 048
     Dates: start: 20140426
  28. OBINUTUZUMAB [Suspect]
     Active Substance: OBINUTUZUMAB
     Dosage: C1D8, DOSE: 1000 MG
     Route: 042
     Dates: start: 20140424, end: 20140613
  29. BENDAMUSTINE [Suspect]
     Active Substance: BENDAMUSTINE
     Route: 042
     Dates: start: 20140416, end: 20140613
  30. RANITIDINE [Concomitant]
     Active Substance: RANITIDINE\RANITIDINE HYDROCHLORIDE
     Dosage: 1 VIAL
     Route: 042
     Dates: start: 20140430, end: 20140430

REACTIONS (2)
  - Pneumonitis [Not Recovered/Not Resolved]
  - Acute hepatic failure [Fatal]

NARRATIVE: CASE EVENT DATE: 20140606
